FAERS Safety Report 26130466 (Version 1)
Quarter: 2025Q4

REPORT INFORMATION
  Report Type: Spontaneous
  Country: CN (occurrence: CN)
  Receive Date: 20251208
  Receipt Date: 20251208
  Transmission Date: 20260118
  Serious: Yes (Other)
  Sender: MYLAN
  Company Number: CN-MYLANLABS-2025M1103552

PATIENT
  Age: 75 Year
  Sex: Male
  Weight: 70 kg

DRUGS (4)
  1. CELEBREX [Suspect]
     Active Substance: CELECOXIB
     Indication: Pleurisy
     Dosage: 0.2 GRAM, BID
     Dates: start: 20251124, end: 20251124
  2. CELEBREX [Suspect]
     Active Substance: CELECOXIB
     Indication: Analgesic therapy
     Dosage: 0.2 GRAM, BID
     Route: 048
     Dates: start: 20251124, end: 20251124
  3. CELEBREX [Suspect]
     Active Substance: CELECOXIB
     Dosage: 0.2 GRAM, BID
     Route: 048
     Dates: start: 20251124, end: 20251124
  4. CELEBREX [Suspect]
     Active Substance: CELECOXIB
     Dosage: 0.2 GRAM, BID
     Dates: start: 20251124, end: 20251124

REACTIONS (1)
  - Hypothermia [Recovering/Resolving]

NARRATIVE: CASE EVENT DATE: 20251124
